FAERS Safety Report 26107302 (Version 1)
Quarter: 2025Q4

REPORT INFORMATION
  Report Type: Other
  Country: GB (occurrence: GB)
  Receive Date: 20251201
  Receipt Date: 20251201
  Transmission Date: 20260118
  Serious: Yes (Disabling)
  Sender: LUPIN
  Company Number: None

PATIENT
  Sex: Female

DRUGS (2)
  1. SERTRALINE [Suspect]
     Active Substance: SERTRALINE HYDROCHLORIDE
     Indication: Insomnia
     Dosage: 150 MG
     Route: 065
  2. SERTRALINE [Suspect]
     Active Substance: SERTRALINE HYDROCHLORIDE
     Dosage: 50 MG EVERY TWO WEEKS
     Route: 065

REACTIONS (1)
  - Atypical migraine [Not Recovered/Not Resolved]

NARRATIVE: CASE EVENT DATE: 20190101
